FAERS Safety Report 6129760-9 (Version None)
Quarter: 2009Q1

REPORT INFORMATION
  Report Type: 
  Country: None (occurrence: None)
  Receive Date: 20090324
  Receipt Date: 20090319
  Transmission Date: 20090719
  Serious: Yes (Other)
  Sender: FDA-Public Use
  Company Number: B0566155A

PATIENT
  Sex: Female

DRUGS (1)
  1. CLENIL MODULITE [Suspect]
     Indication: ASTHMA
     Route: 055

REACTIONS (2)
  - HYPERSENSITIVITY [None]
  - SWELLING FACE [None]
